FAERS Safety Report 16366635 (Version 1)
Quarter: 2019Q2

REPORT INFORMATION
  Report Type: Spontaneous
  Country: US (occurrence: US)
  Receive Date: 20190422
  Receipt Date: 20190422
  Transmission Date: 20190711
  Serious: Yes (Hospitalization)
  Sender: FDA-Public Use
  Company Number: None

PATIENT
  Age: 39 Year
  Sex: Male
  Weight: 89 kg

DRUGS (1)
  1. NALTREXONE [Suspect]
     Active Substance: NALTREXONE
     Indication: ALCOHOL USE DISORDER
     Route: 048
     Dates: start: 20190325, end: 20190405

REACTIONS (2)
  - Rhabdomyolysis [None]
  - Hepatic enzyme increased [None]

NARRATIVE: CASE EVENT DATE: 20190405
